FAERS Safety Report 13497284 (Version 7)
Quarter: 2018Q2

REPORT INFORMATION
  Report Type: Report from Study
  Country: US (occurrence: US)
  Receive Date: 20170428
  Receipt Date: 20180413
  Transmission Date: 20180711
  Serious: Yes (Hospitalization, Other)
  Sender: FDA-Public Use
  Company Number: US-SA-2016SA189288

PATIENT
  Age: 35 Year
  Sex: Female

DRUGS (5)
  1. FABRAZYME [Suspect]
     Active Substance: AGALSIDASE BETA
     Indication: FABRY^S DISEASE
     Dosage: FREQ: Q2
     Route: 041
  2. EFFEXOR [Suspect]
     Active Substance: VENLAFAXINE HYDROCHLORIDE
     Route: 065
  3. FABRAZYME [Suspect]
     Active Substance: AGALSIDASE BETA
     Indication: FABRY^S DISEASE
     Dosage: FREQ: Q2
     Route: 041
     Dates: start: 20160204
  4. ZOFRAN [Concomitant]
     Active Substance: ONDANSETRON HYDROCHLORIDE
     Indication: PREMEDICATION
     Route: 065
     Dates: start: 20161005
  5. LITHIUM CARBONATE. [Suspect]
     Active Substance: LITHIUM CARBONATE
     Route: 065

REACTIONS (32)
  - Arthralgia [Not Recovered/Not Resolved]
  - Asthenia [Recovering/Resolving]
  - Malaise [Recovering/Resolving]
  - Irritability [Not Recovered/Not Resolved]
  - Lower respiratory tract infection [Recovering/Resolving]
  - Catheter placement [Recovering/Resolving]
  - Vomiting [Recovering/Resolving]
  - Amnesia [Not Recovered/Not Resolved]
  - Breast cancer recurrent [Unknown]
  - Hippocampal sclerosis [Not Recovered/Not Resolved]
  - Gastrointestinal disorder [Recovering/Resolving]
  - Arthralgia [Recovering/Resolving]
  - Appetite disorder [Not Recovered/Not Resolved]
  - Arrhythmia [Recovering/Resolving]
  - Dry eye [Not Recovered/Not Resolved]
  - Condition aggravated [Recovering/Resolving]
  - Joint range of motion decreased [Recovering/Resolving]
  - Patellofemoral pain syndrome [Recovering/Resolving]
  - Hyperintensity in brain deep nuclei [Not Recovered/Not Resolved]
  - Sjogren^s syndrome [Not Recovered/Not Resolved]
  - Artificial menopause [Recovering/Resolving]
  - Lymphoedema [Recovering/Resolving]
  - Angiokeratoma [Recovering/Resolving]
  - Feeling abnormal [Not Recovered/Not Resolved]
  - Full blood count decreased [Unknown]
  - Dry mouth [Not Recovered/Not Resolved]
  - Diarrhoea [Recovering/Resolving]
  - Dyspnoea [Recovering/Resolving]
  - Confusional state [Not Recovered/Not Resolved]
  - Cerebral disorder [Not Recovered/Not Resolved]
  - Uterine disorder [Recovering/Resolving]
  - Condition aggravated [Not Recovered/Not Resolved]

NARRATIVE: CASE EVENT DATE: 2016
